FAERS Safety Report 9606768 (Version 1)
Quarter: 2013Q4

REPORT INFORMATION
  Report Type: Spontaneous
  Country: US (occurrence: US)
  Receive Date: 20131008
  Receipt Date: 20131008
  Transmission Date: 20140711
  Serious: No
  Sender: FDA-Public Use
  Company Number: US-AMGEN-USASP2013062808

PATIENT
  Age: 56 Year
  Sex: Female

DRUGS (5)
  1. PROLIA [Suspect]
     Indication: OSTEOPOROSIS
     Dosage: UNK
     Route: 065
  2. ANALGESICS [Concomitant]
     Indication: PAIN
     Dosage: UNK
  3. ANXIOLYTICS [Concomitant]
     Indication: ANXIETY
     Dosage: UNK
  4. DEPOMEDROL [Concomitant]
     Indication: MIGRAINE
     Dosage: UNK
  5. VIVELLE DOT [Concomitant]
     Dosage: UNK

REACTIONS (6)
  - Pain [Not Recovered/Not Resolved]
  - Joint crepitation [Not Recovered/Not Resolved]
  - Gait disturbance [Not Recovered/Not Resolved]
  - Bunion [Not Recovered/Not Resolved]
  - Foot deformity [Not Recovered/Not Resolved]
  - Arthralgia [Not Recovered/Not Resolved]
